FAERS Safety Report 22124188 (Version 2)
Quarter: 2023Q1

REPORT INFORMATION
  Report Type: Other
  Country: KR (occurrence: None)
  Receive Date: 20230322
  Receipt Date: 20230324
  Transmission Date: 20230417
  Serious: Yes (Hospitalization)
  Sender: FDA-Public Use
  Company Number: KR-ROCHE-3278418

PATIENT
  Age: 53 Year
  Sex: Female
  Weight: 69 kg

DRUGS (34)
  1. ATEZOLIZUMAB [Suspect]
     Active Substance: ATEZOLIZUMAB
     Indication: Cervix carcinoma
     Route: 041
     Dates: start: 20230110, end: 20230110
  2. OXYCODONE HYDROCHLORIDE [Concomitant]
     Active Substance: OXYCODONE HYDROCHLORIDE
     Route: 048
     Dates: start: 20220406, end: 20230223
  3. MIRABEGRON [Concomitant]
     Active Substance: MIRABEGRON
     Route: 048
     Dates: start: 20210728, end: 20230228
  4. HARNAL [Concomitant]
     Active Substance: TAMSULOSIN HYDROCHLORIDE
     Route: 048
     Dates: start: 20210728, end: 20230228
  5. NEXIUM [Concomitant]
     Active Substance: ESOMEPRAZOLE MAGNESIUM
     Route: 048
  6. NEXIUM [Concomitant]
     Active Substance: ESOMEPRAZOLE MAGNESIUM
     Route: 048
     Dates: start: 20230213, end: 20230228
  7. NEXIUM [Concomitant]
     Active Substance: ESOMEPRAZOLE MAGNESIUM
     Route: 042
     Dates: start: 20230302
  8. CACEPIN [Concomitant]
     Route: 048
  9. XANAX [Concomitant]
     Active Substance: ALPRAZOLAM
     Route: 048
     Dates: start: 20221016
  10. MIRTAZAPINE [Concomitant]
     Active Substance: MIRTAZAPINE
     Route: 048
     Dates: start: 20220915
  11. LYRICA [Concomitant]
     Active Substance: PREGABALIN
     Route: 048
     Dates: start: 20210408, end: 20230228
  12. LYRICA [Concomitant]
     Active Substance: PREGABALIN
     Route: 048
     Dates: start: 20230206, end: 20230212
  13. LYRICA [Concomitant]
     Active Substance: PREGABALIN
     Route: 048
     Dates: start: 20230220, end: 20230226
  14. MEGACE F [Concomitant]
     Route: 048
     Dates: start: 20221018, end: 20230227
  15. DULACKHAN EASY [Concomitant]
     Route: 048
     Dates: start: 20230207, end: 20230228
  16. ENTELON [Concomitant]
     Route: 048
     Dates: start: 20230211
  17. POTASSIUM CHLORIDE [Concomitant]
     Active Substance: POTASSIUM CHLORIDE
     Route: 048
     Dates: start: 20230213, end: 20230213
  18. NORVASC [Concomitant]
     Active Substance: AMLODIPINE BESYLATE
     Route: 048
     Dates: start: 20230206, end: 20230206
  19. NORVASC [Concomitant]
     Active Substance: AMLODIPINE BESYLATE
     Route: 048
     Dates: start: 20230223, end: 20230223
  20. PHAZYME [Concomitant]
     Active Substance: DIMETHICONE 410
     Route: 048
     Dates: start: 20230210, end: 20230217
  21. PHAZYME [Concomitant]
     Active Substance: DIMETHICONE 410
     Route: 048
     Dates: start: 20230224
  22. CALCIUM POLYCARBOPHIL [Concomitant]
     Active Substance: CALCIUM POLYCARBOPHIL
     Route: 048
     Dates: start: 20230207, end: 20230207
  23. TASNA [Concomitant]
     Route: 048
     Dates: start: 20230201, end: 20230209
  24. ACETPHEN PREMIX [Concomitant]
     Route: 042
     Dates: start: 20230228, end: 20230228
  25. SK ALBUMIN [Concomitant]
     Dosage: 20% INJECTION 100 ML
     Route: 042
     Dates: start: 20230206, end: 20230206
  26. ALLPAIN (SOUTH KOREA) [Concomitant]
     Route: 042
     Dates: start: 20230303
  27. ANTIMODIC [Concomitant]
     Dosage: ANTIMODIC INJECTION 3 ML
     Route: 042
     Dates: start: 20230302
  28. PROPACETAMOL HYDROCHLORIDE [Concomitant]
     Active Substance: PROPACETAMOL HYDROCHLORIDE
     Route: 042
     Dates: start: 20230301, end: 20230303
  29. FREAMINE III NOS [Concomitant]
     Active Substance: AMINO ACIDS
     Dosage: 10% INJECTION 500 ML (BAG)
     Route: 042
     Dates: start: 20230210, end: 20230226
  30. FURTMAN [Concomitant]
     Dosage: FURTMAN INJECTION 2 ML
     Route: 042
     Dates: start: 20230304
  31. DONG-A GASTER [Concomitant]
     Route: 042
     Dates: start: 20230301, end: 20230301
  32. FENTANYL [Concomitant]
     Active Substance: FENTANYL
     Dosage: 100 MCG/H
     Route: 061
     Dates: start: 20230202
  33. LASIX [Concomitant]
     Active Substance: FUROSEMIDE
     Route: 048
     Dates: start: 20230206, end: 20230212
  34. LASIX [Concomitant]
     Active Substance: FUROSEMIDE
     Route: 048
     Dates: start: 20230220, end: 20230226

REACTIONS (1)
  - Nephritis [Recovered/Resolved]

NARRATIVE: CASE EVENT DATE: 20230201
